FAERS Safety Report 19846940 (Version 3)
Quarter: 2023Q4

REPORT INFORMATION
  Report Type: Spontaneous
  Country: FR (occurrence: FR)
  Receive Date: 20210917
  Receipt Date: 20231006
  Transmission Date: 20240109
  Serious: No
  Sender: FDA-Public Use
  Company Number: FR-BAYER-2021-212907

PATIENT
  Age: 62 Year

DRUGS (1)
  1. ULTRAVIST [Suspect]
     Active Substance: IOPROMIDE
     Dosage: 80 ML, ONCE
     Dates: start: 20210915

REACTIONS (2)
  - Urticaria [None]
  - Face oedema [None]
